FAERS Safety Report 6719217-6 (Version None)
Quarter: 2010Q2

REPORT INFORMATION
  Report Type: 
  Country: None (occurrence: None)
  Receive Date: 20100511
  Receipt Date: 20100504
  Transmission Date: 20101027
  Serious: Yes (Hospitalization)
  Sender: FDA-Public Use
  Company Number: US-RB-008434-10

PATIENT
  Age: 61 Year
  Sex: Male

DRUGS (4)
  1. SUBOXONE [Suspect]
     Route: 060
     Dates: start: 20090101
  2. CLONIDINE [Suspect]
     Route: 048
     Dates: start: 20100405
  3. LISINOPRIL [Suspect]
     Route: 048
     Dates: start: 20100405
  4. ATENOLOL [Suspect]
     Route: 048
     Dates: start: 20100405

REACTIONS (4)
  - BLOOD PRESSURE INCREASED [None]
  - CONSTIPATION [None]
  - FEELING ABNORMAL [None]
  - HERNIA [None]
